FAERS Safety Report 17511898 (Version 1)
Quarter: 2020Q1

REPORT INFORMATION
  Report Type: Spontaneous
  Country: CA (occurrence: CA)
  Receive Date: 20200308
  Receipt Date: 20200308
  Transmission Date: 20200409
  Serious: Yes (Life-Threatening, Hospitalization, Other)
  Sender: FDA-Public Use
  Company Number: NVSC2020CA065148

PATIENT
  Age: 55 Year
  Sex: Male

DRUGS (9)
  1. SULFAMETHOXAZOLE AND TRIMETHOPRIM [Concomitant]
     Active Substance: SULFAMETHOXAZOLE\TRIMETHOPRIM
     Indication: PRODUCT USED FOR UNKNOWN INDICATION
     Route: 065
  2. TACROLIMUS. [Suspect]
     Active Substance: TACROLIMUS
     Indication: IMMUNOSUPPRESSANT DRUG THERAPY
     Route: 065
  3. MYCOPHENOLATE MOFETIL. [Suspect]
     Active Substance: MYCOPHENOLATE MOFETIL
     Indication: PRODUCT USED FOR UNKNOWN INDICATION
     Dosage: 250 MG, Q12H (REPORTED AS 1 EVERY 12 HOURS)
     Route: 065
  4. MYCOPHENOLIC ACID. [Suspect]
     Active Substance: MYCOPHENOLIC ACID
     Indication: IMMUNOSUPPRESSANT DRUG THERAPY
     Route: 065
  5. ACYCLOVIR. [Suspect]
     Active Substance: ACYCLOVIR
     Indication: HERPES SIMPLEX
     Dosage: UNK FOR 3 WEEKS
     Route: 042
  6. METHYLPREDNISOLONE. [Suspect]
     Active Substance: METHYLPREDNISOLONE
     Indication: IMMUNOSUPPRESSANT DRUG THERAPY
     Route: 065
  7. LEVETIRACETAM. [Concomitant]
     Active Substance: LEVETIRACETAM
     Indication: PRODUCT USED FOR UNKNOWN INDICATION
     Route: 065
  8. ACYCLOVIR. [Suspect]
     Active Substance: ACYCLOVIR
     Indication: PERINEAL ULCERATION
     Dosage: UNK FOR 3 WEEKS
     Route: 042
  9. SIMULECT [Suspect]
     Active Substance: BASILIXIMAB
     Indication: IMMUNOSUPPRESSANT DRUG THERAPY
     Route: 065

REACTIONS (3)
  - Hepatitis A [Unknown]
  - Neutropenia [Unknown]
  - Lymphopenia [Unknown]
